FAERS Safety Report 6940393-4 (Version None)
Quarter: 2010Q3

REPORT INFORMATION
  Report Type: 
  Country: None (occurrence: None)
  Receive Date: 20100820
  Receipt Date: 20091207
  Transmission Date: 20110219
  Serious: Yes (Hospitalization)
  Sender: FDA-Public Use
  Company Number: 2009SP040696

PATIENT
  Age: 20 Year
  Sex: Female

DRUGS (1)
  1. NUVARING [Suspect]
     Indication: PRODUCT USED FOR UNKNOWN INDICATION
     Dates: start: 20070101, end: 20071201

REACTIONS (18)
  - ANTICONVULSANT DRUG LEVEL BELOW THERAPEUTIC [None]
  - CAVERNOUS SINUS THROMBOSIS [None]
  - CEREBRAL INFARCTION [None]
  - CEREBRAL VENOUS THROMBOSIS [None]
  - CEREBROVASCULAR DISORDER [None]
  - CHEST PAIN [None]
  - CONVULSION [None]
  - EAR DISCOMFORT [None]
  - GASTRITIS [None]
  - GRAND MAL CONVULSION [None]
  - HAEMOPTYSIS [None]
  - HYPOTENSION [None]
  - INTRACRANIAL VENOUS SINUS THROMBOSIS [None]
  - PULMONARY EMBOLISM [None]
  - PULMONARY INFARCTION [None]
  - PULMONARY OEDEMA [None]
  - SUPERIOR SAGITTAL SINUS THROMBOSIS [None]
  - VERTIGO [None]
